FAERS Safety Report 5327695-2 (Version None)
Quarter: 2007Q2

REPORT INFORMATION
  Report Type: 
  Country: None (occurrence: None)
  Receive Date: 20070517
  Receipt Date: 20070510
  Transmission Date: 20071010
  Serious: Yes (Death, Hospitalization)
  Sender: FDA-Public Use
  Company Number: FR-MERCK-0705FRA00020

PATIENT
  Age: 80 Year
  Sex: Male

DRUGS (3)
  1. PRIMAXIN [Suspect]
     Indication: SEPTIC SHOCK
     Route: 042
     Dates: start: 20070413, end: 20070419
  2. CIPROFLOXACIN [Suspect]
     Indication: SEPTIC SHOCK
     Route: 042
     Dates: start: 20070410, end: 20070414
  3. PIPERACILLIN SODIUM AND TAZOBACTAM SODIUM [Suspect]
     Indication: SEPTIC SHOCK
     Route: 042
     Dates: start: 20070410, end: 20070414

REACTIONS (2)
  - DEATH [None]
  - STEVENS-JOHNSON SYNDROME [None]
